FAERS Safety Report 16271217 (Version 2)
Quarter: 2019Q2

REPORT INFORMATION
  Report Type: Spontaneous
  Country: US (occurrence: US)
  Receive Date: 20190503
  Receipt Date: 20190506
  Transmission Date: 20190711
  Serious: No
  Sender: FDA-Public Use
  Company Number: US-PFIZER INC-2019185679

PATIENT
  Age: 43 Year
  Sex: Male
  Weight: 102.6 kg

DRUGS (2)
  1. GEODON [Suspect]
     Active Substance: ZIPRASIDONE HYDROCHLORIDE\ZIPRASIDONE MESYLATE
     Dosage: UNK, DAILY (ONE AT NIGHT)
  2. GEODON [Suspect]
     Active Substance: ZIPRASIDONE HYDROCHLORIDE\ZIPRASIDONE MESYLATE
     Dosage: UNK, DAILY (TWO TABLETS OF NON GENERIC GEODON DAILY)

REACTIONS (4)
  - Somnolence [Unknown]
  - Impaired driving ability [Unknown]
  - Pollakiuria [Unknown]
  - Asthenopia [Unknown]
